FAERS Safety Report 5399417-0 (Version None)
Quarter: 2007Q3

REPORT INFORMATION
  Report Type: 
  Country: None (occurrence: None)
  Receive Date: 20070727
  Receipt Date: 20070720
  Transmission Date: 20080115
  Serious: Yes (Other)
  Sender: FDA-Public Use
  Company Number: JP-ASTRAZENECA-2007AP01826

PATIENT
  Age: 29565 Day
  Sex: Male

DRUGS (6)
  1. CASODEX [Suspect]
     Indication: PROSTATE CANCER
     Route: 048
     Dates: start: 20061212, end: 20070321
  2. ZOLADEX [Suspect]
     Indication: PROSTATE CANCER
     Route: 058
     Dates: start: 20061225, end: 20070323
  3. ZYRTEC [Concomitant]
     Route: 048
     Dates: start: 20060301
  4. PREDNISOLONE [Concomitant]
     Route: 048
     Dates: start: 20060301
  5. CLARITIN [Concomitant]
     Route: 048
     Dates: start: 20060301
  6. CLARITIN [Concomitant]
     Route: 048
     Dates: start: 20060301

REACTIONS (1)
  - PHOTOSENSITIVITY REACTION [None]
